FAERS Safety Report 11925240 (Version 2)
Quarter: 2016Q1

REPORT INFORMATION
  Report Type: Report from Study
  Country: BR (occurrence: BR)
  Receive Date: 20160118
  Receipt Date: 20160325
  Transmission Date: 20160526
  Serious: Yes (Other)
  Sender: FDA-Public Use
  Company Number: BR-BAYER-2016-007903

PATIENT

DRUGS (2)
  1. ACETYLSALICYLIC ACID [Suspect]
     Active Substance: ASPIRIN
     Dosage: UNK
  2. ACETYLSALICYLIC ACID [Suspect]
     Active Substance: ASPIRIN
     Dosage: UNK

REACTIONS (6)
  - Dilatation ventricular [Recovered/Resolved]
  - Tricuspid valve incompetence [Recovered/Resolved]
  - Right ventricular dysfunction [Recovered/Resolved]
  - Persistent foetal circulation [Recovered/Resolved]
  - Ductus arteriosus premature closure [None]
  - Maternal exposure during pregnancy [None]
